FAERS Safety Report 8193255-1 (Version None)
Quarter: 2012Q1

REPORT INFORMATION
  Report Type: 
  Country: None (occurrence: None)
  Receive Date: 20120308
  Receipt Date: 20120305
  Transmission Date: 20120608
  Serious: Yes (Hospitalization)
  Sender: FDA-Public Use
  Company Number: FR-BAYER-2012-022170

PATIENT
  Age: 75 Year

DRUGS (4)
  1. RIVAROXABAN [Suspect]
     Indication: HIP ARTHROPLASTY
  2. ASPIRIN [Suspect]
  3. ATORVASTATIN [Concomitant]
  4. ESCITALOPRAM OXALATE [Concomitant]

REACTIONS (2)
  - SUBCUTANEOUS HAEMATOMA [None]
  - PROCEDURAL HAEMORRHAGE [None]
